FAERS Safety Report 5877885-5 (Version None)
Quarter: 2008Q3

REPORT INFORMATION
  Report Type: 
  Country: None (occurrence: None)
  Receive Date: 20080911
  Receipt Date: 20080904
  Transmission Date: 20090109
  Serious: Yes (Other)
  Sender: FDA-Public Use
  Company Number: SE-ASTRAZENECA-2008SE04191

PATIENT
  Age: 51 Year
  Sex: Female

DRUGS (3)
  1. NEXIUM [Suspect]
     Route: 048
  2. AMOXICILLIN [Suspect]
     Route: 048
  3. CLARITHROMYCIN [Suspect]
     Route: 048

REACTIONS (1)
  - COLITIS [None]
